FAERS Safety Report 19508786 (Version 1)
Quarter: 2021Q3

REPORT INFORMATION
  Report Type: Report from Study
  Country: ES (occurrence: ES)
  Receive Date: 20210708
  Receipt Date: 20210708
  Transmission Date: 20211014
  Serious: Yes (Other)
  Sender: FDA-Public Use
  Company Number: ES-ASTRAZENECA-2021A582752

PATIENT
  Age: 71 Year
  Sex: Female

DRUGS (3)
  1. DURVALUMAB. [Suspect]
     Active Substance: DURVALUMAB
     Route: 042
     Dates: start: 20201207, end: 20210506
  2. CARBOPLATIN. [Suspect]
     Active Substance: CARBOPLATIN
     Route: 065
     Dates: start: 20201207, end: 20210506
  3. ETOPOSIDE. [Suspect]
     Active Substance: ETOPOSIDE
     Route: 065
     Dates: start: 20201207, end: 20210506

REACTIONS (1)
  - Toxicity to various agents [Unknown]
